FAERS Safety Report 5525844-4 (Version None)
Quarter: 2007Q4

REPORT INFORMATION
  Report Type: 
  Country: None (occurrence: None)
  Receive Date: 20071126
  Receipt Date: 20071115
  Transmission Date: 20080405
  Serious: Yes (Other)
  Sender: FDA-Public Use
  Company Number: US-PFIZER INC-2007096718

PATIENT
  Sex: Female

DRUGS (4)
  1. DOFETILIDE [Suspect]
  2. ASPIRIN [Concomitant]
  3. ATENOLOL [Concomitant]
  4. SYNTHROID [Concomitant]

REACTIONS (5)
  - ATRIAL FIBRILLATION [None]
  - BLOOD PRESSURE DECREASED [None]
  - DRY EYE [None]
  - DRY MOUTH [None]
  - HEART RATE DECREASED [None]
